FAERS Safety Report 4816958-2 (Version None)
Quarter: 2005Q4

REPORT INFORMATION
  Report Type: 
  Country: None (occurrence: None)
  Receive Date: 20051031
  Receipt Date: 20051031
  Transmission Date: 20060501
  Serious: Yes (Hospitalization)
  Sender: FDA-Public Use
  Company Number: None

PATIENT
  Age: 93 Year
  Sex: Male
  Weight: 57.6068 kg

DRUGS (23)
  1. FELODIPINE 2.5 MG DAILY [Suspect]
     Indication: HYPERTENSION
  2. HYDROCHLOROTHIAZIDE [Suspect]
     Indication: HYPERTENSION
  3. METOPROLOL 12.5 MG BID [Suspect]
     Indication: HYPERTENSION
  4. FLUOXETINE [Suspect]
     Indication: DEPRESSION
  5. ACETAMINOPHEN [Concomitant]
  6. ALBUTEROL 3/IPRATROP IHN [Concomitant]
  7. ALBUTEROL 90/IPRATROP IHN [Concomitant]
  8. ASPIRIN [Concomitant]
  9. BEATHERITE SYSTEM [Concomitant]
  10. CLOTRIMAZOLE [Concomitant]
  11. CYANOCOBALAMIN [Concomitant]
  12. DM 10/GUAIFENES [Concomitant]
  13. FELODIPINE [Concomitant]
  14. FLUNISOLIDE IHN [Concomitant]
  15. OLANZAPINE [Concomitant]
  16. FOOD THICKENER , INSTANT [Concomitant]
  17. HYDROCHLOROTHIAZIDE [Concomitant]
  18. LORAZEPAM [Concomitant]
  19. METOCLOPRAMIDE HCL [Concomitant]
  20. METOPROLOL TARTRATE [Concomitant]
  21. NUTRITION SUPL ENSURE/VANILLA [Concomitant]
  22. OMEPRAZOLE [Concomitant]
  23. RANITIDINE HCL [Concomitant]

REACTIONS (4)
  - DIZZINESS [None]
  - FALL [None]
  - HYPONATRAEMIA [None]
  - ORTHOSTATIC HYPOTENSION [None]
